FAERS Safety Report 4341789-X (Version None)
Quarter: 2004Q2

REPORT INFORMATION
  Report Type: 
  Country: None (occurrence: None)
  Receive Date: 20040416
  Receipt Date: 20040331
  Transmission Date: 20050107
  Serious: Yes (Hospitalization)
  Sender: FDA-Public Use
  Company Number: A03200400370

PATIENT
  Age: 70 Year
  Sex: Male
  Weight: 98.8842 kg

DRUGS (8)
  1. PLAVIX [Suspect]
     Indication: HYPERTENSION
     Dosage: 75 MG QD - ORAL
     Route: 048
     Dates: start: 20011001, end: 20031101
  2. PLAVIX [Suspect]
     Indication: MYOCARDIAL INFARCTION
     Dosage: 75 MG QD - ORAL
     Route: 048
     Dates: start: 20011001, end: 20031101
  3. PLAVIX [Suspect]
     Indication: PULMONARY THROMBOSIS
     Dosage: 75 MG QD - ORAL
     Route: 048
     Dates: start: 20011001, end: 20031101
  4. ACETAMINOPHEN W/ PROPOXYPHENE HCL [Concomitant]
  5. FUROSEMIDE [Concomitant]
  6. ISOSORBIDE DINITRATE [Concomitant]
  7. POTASSIUM [Concomitant]
  8. GLYCERYL TRINITRATE [Concomitant]

REACTIONS (2)
  - COMA [None]
  - MEMORY IMPAIRMENT [None]
